FAERS Safety Report 13617336 (Version 1)
Quarter: 2017Q2

REPORT INFORMATION
  Report Type: Spontaneous
  Country: US (occurrence: US)
  Receive Date: 20170606
  Receipt Date: 20170606
  Transmission Date: 20170830
  Serious: No
  Sender: FDA-Public Use
  Company Number: US-SA-2016SA220623

PATIENT
  Age: 58 Year
  Sex: Female

DRUGS (4)
  1. LANTUS SOLOSTAR [Suspect]
     Active Substance: INSULIN GLARGINE
     Indication: TYPE 2 DIABETES MELLITUS
     Dosage: DOSE:89 UNIT(S)
     Route: 065
     Dates: start: 2015, end: 201611
  2. SOLOSTAR [Concomitant]
     Active Substance: DEVICE
     Dates: start: 2015, end: 201611
  3. NOVOLIN [Concomitant]
     Active Substance: INSULIN HUMAN
     Route: 065
  4. VICTOZA [Concomitant]
     Active Substance: LIRAGLUTIDE
     Dosage: IN THE MORNINGS
     Route: 065

REACTIONS (1)
  - Dizziness [Unknown]
